FAERS Safety Report 18035305 (Version 1)
Quarter: 2020Q3

REPORT INFORMATION
  Report Type: Spontaneous
  Country: FR (occurrence: FR)
  Receive Date: 20200717
  Receipt Date: 20200717
  Transmission Date: 20201103
  Serious: Yes (Hospitalization, Other)
  Sender: FDA-Public Use
  Company Number: FR-AUROBINDO-AUR-APL-2020-035051

PATIENT
  Age: 68 Year
  Sex: Female

DRUGS (8)
  1. VALACICLOVIR [Suspect]
     Active Substance: VALACYCLOVIR HYDROCHLORIDE
     Indication: ANTIVIRAL PROPHYLAXIS
     Dosage: 1000 MILLIGRAM, ONCE A DAY
     Route: 048
     Dates: start: 20200409, end: 20200518
  2. FOLINORAL [Suspect]
     Active Substance: LEUCOVORIN CALCIUM
     Indication: PROPHYLAXIS
     Dosage: 25 MILLIGRAM, EVERY WEEK
     Route: 048
     Dates: start: 20200409, end: 20200518
  3. LEXOMIL [Concomitant]
     Active Substance: BROMAZEPAM
     Indication: PRODUCT USED FOR UNKNOWN INDICATION
     Dosage: UNK
     Route: 065
  4. ACEBUTOLOL HYDROCHLORIDE. [Concomitant]
     Active Substance: ACEBUTOLOL HYDROCHLORIDE
     Indication: PRODUCT USED FOR UNKNOWN INDICATION
     Dosage: UNK
     Route: 065
  5. LEVOTHYROX [Concomitant]
     Active Substance: LEVOTHYROXINE
     Indication: PRODUCT USED FOR UNKNOWN INDICATION
     Dosage: UNK
     Route: 065
  6. BACTRIM [Suspect]
     Active Substance: SULFAMETHOXAZOLE\TRIMETHOPRIM
     Indication: PROPHYLAXIS
     Dosage: 3 DOSAGE FORM, EVERY WEEK
     Route: 048
     Dates: start: 20200409, end: 20200518
  7. RITUXIMAB. [Suspect]
     Active Substance: RITUXIMAB
     Indication: LYMPHOMA
     Dosage: UNK
     Route: 042
     Dates: start: 20200409, end: 20200430
  8. CHLORAMINOPHENE [Suspect]
     Active Substance: CHLORAMBUCIL
     Indication: LYMPHOMA
     Dosage: 4 MILLIGRAM, ONCE A DAY
     Route: 048
     Dates: start: 20200409, end: 20200518

REACTIONS (6)
  - Pruritus [Recovering/Resolving]
  - Dermatitis exfoliative generalised [Recovering/Resolving]
  - Eosinophilia [Not Recovered/Not Resolved]
  - Drug reaction with eosinophilia and systemic symptoms [Recovering/Resolving]
  - Face oedema [Recovering/Resolving]
  - Pyrexia [Recovered/Resolved]

NARRATIVE: CASE EVENT DATE: 20200515
